FAERS Safety Report 26166423 (Version 2)
Quarter: 2025Q4

REPORT INFORMATION
  Report Type: Spontaneous
  Country: EU (occurrence: EU)
  Receive Date: 20251217
  Receipt Date: 20251219
  Transmission Date: 20260118
  Serious: Yes (Hospitalization)
  Sender: JOHNSON AND JOHNSON
  Company Number: EU-SANDOZ-SDZ2025DE093112

PATIENT
  Sex: Female

DRUGS (20)
  1. SIMPONI [Suspect]
     Active Substance: GOLIMUMAB
     Indication: Product used for unknown indication
     Dosage: 50 MG
     Dates: start: 20190415, end: 20190615
  2. TREMFYA [Suspect]
     Active Substance: GUSELKUMAB
     Indication: Product used for unknown indication
     Dosage: 100 MG
     Dates: start: 20230424, end: 20230704
  3. TREMFYA [Suspect]
     Active Substance: GUSELKUMAB
  4. TREMFYA [Suspect]
     Active Substance: GUSELKUMAB
  5. TREMFYA [Suspect]
     Active Substance: GUSELKUMAB
  6. COSENTYX [Suspect]
     Active Substance: SECUKINUMAB
     Indication: Psoriatic arthropathy
     Dosage: UNK, (INJECTION NOS)
  7. COSENTYX [Suspect]
     Active Substance: SECUKINUMAB
     Indication: Product used for unknown indication
     Dosage: 150 MG
     Dates: start: 20190712, end: 20191004
  8. CELECOXIB [Suspect]
     Active Substance: CELECOXIB
     Indication: Product used for unknown indication
     Dosage: 400 MG
  9. CELECOXIB [Suspect]
     Active Substance: CELECOXIB
     Dosage: 200 MG
  10. CELECOXIB [Suspect]
     Active Substance: CELECOXIB
     Dosage: 400 MG
  11. CELECOXIB [Suspect]
     Active Substance: CELECOXIB
     Dosage: 400 MG
     Dates: start: 20220404, end: 20221107
  12. ETORICOXIB [Suspect]
     Active Substance: ETORICOXIB
     Indication: Product used for unknown indication
     Dosage: 90 MG
     Dates: start: 20190819, end: 20191018
  13. ETORICOXIB [Suspect]
     Active Substance: ETORICOXIB
     Dosage: 60 MG
  14. ETORICOXIB [Suspect]
     Active Substance: ETORICOXIB
     Dosage: 90 MG
     Dates: start: 20230424, end: 20231120
  15. ETORICOXIB [Suspect]
     Active Substance: ETORICOXIB
     Dosage: 60 MG
  16. ETORICOXIB [Suspect]
     Active Substance: ETORICOXIB
     Dosage: 90 MG
  17. ETORICOXIB [Suspect]
     Active Substance: ETORICOXIB
     Dosage: 90 MG
  18. LEFLUNOMIDE [Suspect]
     Active Substance: LEFLUNOMIDE
     Indication: Product used for unknown indication
     Dosage: 20 MG
     Dates: start: 20201208, end: 20210315
  19. RINVOQ [Suspect]
     Active Substance: UPADACITINIB
     Indication: Product used for unknown indication
     Dosage: 15 MG
     Dates: start: 20210315, end: 20210802
  20. ARAVA [Suspect]
     Active Substance: LEFLUNOMIDE
     Indication: Product used for unknown indication
     Dosage: 20 MG
     Dates: start: 20201208, end: 20210315

REACTIONS (6)
  - Osteoarthritis [Unknown]
  - Knee arthroplasty [Unknown]
  - Skin disorder [Unknown]
  - Eye discharge [Unknown]
  - Nasal congestion [Unknown]
  - Ear discomfort [Unknown]

NARRATIVE: CASE EVENT DATE: 20190915
